FAERS Safety Report 16790638 (Version 1)
Quarter: 2019Q3

REPORT INFORMATION
  Report Type: Spontaneous
  Country: US (occurrence: US)
  Receive Date: 20190910
  Receipt Date: 20190910
  Transmission Date: 20191005
  Serious: Yes (Hospitalization, Other)
  Sender: FDA-Public Use
  Company Number: US-PFIZER INC-2019389649

PATIENT
  Age: 75 Year
  Sex: Female

DRUGS (1)
  1. EXEMESTANE. [Suspect]
     Active Substance: EXEMESTANE
     Indication: BREAST CANCER FEMALE
     Dosage: UNK
     Dates: start: 20181019

REACTIONS (4)
  - Neoplasm progression [Unknown]
  - Pancytopenia [Unknown]
  - Febrile neutropenia [Unknown]
  - Infection [Unknown]
